FAERS Safety Report 4883722-8 (Version None)
Quarter: 2006Q1

REPORT INFORMATION
  Report Type: 
  Country: None (occurrence: None)
  Receive Date: 20060113
  Receipt Date: 20051229
  Transmission Date: 20060701
  Serious: Yes (Hospitalization)
  Sender: FDA-Public Use
  Company Number: US_0507119863

PATIENT
  Sex: Female

DRUGS (20)
  1. ZYPREXA [Suspect]
     Indication: PSYCHOTIC DISORDER
     Dosage: 20 MG
     Dates: start: 20040902, end: 20040101
  2. TRICOR [Concomitant]
  3. PROTONIX [Concomitant]
  4. HYDROXYZINE PAMOATE [Concomitant]
  5. ALTACE [Concomitant]
  6. METFORMIN HCL [Concomitant]
  7. MIRTAZAPINE [Concomitant]
  8. DOXEPIN HCL [Concomitant]
  9. LIPITOR [Concomitant]
  10. DIAZEPAM [Concomitant]
  11. SEROQUEL         /UNK/ (QUETIAPINE FUMARATE) [Concomitant]
  12. AMBIEN [Concomitant]
  13. CLONAZEPAM [Concomitant]
  14. FLUOXETINE HYDROCHLORIDE (FLUOXETINE HYDROCHLORIDE UNKNOWN FORMULATION [Concomitant]
  15. IMIPRAMINE (IMPRAMINE) [Concomitant]
  16. PREMARIN [Concomitant]
  17. HALOPERIDOL [Concomitant]
  18. QUININE SULFATE (QUININE SULFATE UNKNOWN FORMULATION) [Concomitant]
  19. EFFEXOR XR [Concomitant]
  20. DEPAKOTE - SLOW RELEASE (VALPROATE SEMISODIUM) [Concomitant]

REACTIONS (3)
  - CELLULITIS [None]
  - DIABETES MELLITUS [None]
  - DIABETIC ULCER [None]
